FAERS Safety Report 23522355 (Version 2)
Quarter: 2024Q1

REPORT INFORMATION
  Report Type: Report from Study
  Country: US (occurrence: US)
  Receive Date: 20240214
  Receipt Date: 20240220
  Transmission Date: 20240410
  Serious: Yes (Hospitalization, Other)
  Sender: FDA-Public Use
  Company Number: US-GILEAD-2024-0661846

PATIENT
  Sex: Female

DRUGS (3)
  1. AMBRISENTAN [Suspect]
     Active Substance: AMBRISENTAN
     Indication: Pulmonary arterial hypertension
     Dosage: 10 MG, QD
     Route: 065
     Dates: start: 20090812
  2. REVATIO [Concomitant]
     Active Substance: SILDENAFIL CITRATE
  3. FLOLAN [Concomitant]
     Active Substance: EPOPROSTENOL SODIUM

REACTIONS (15)
  - Gait disturbance [Not Recovered/Not Resolved]
  - Neuromyopathy [Unknown]
  - Memory impairment [Unknown]
  - Peripheral swelling [Unknown]
  - Joint swelling [Unknown]
  - Pneumonia [Unknown]
  - Pulmonary hypertension [Unknown]
  - Urinary tract infection [Unknown]
  - Hip fracture [Unknown]
  - Abdominal pain [Unknown]
  - Asthenia [Unknown]
  - Confusional state [Unknown]
  - Hypersomnia [Unknown]
  - Unevaluable event [Unknown]
  - Fatigue [Unknown]
